FAERS Safety Report 10034110 (Version 1)
Quarter: 2014Q1

REPORT INFORMATION
  Report Type: Spontaneous
  Country: US (occurrence: None)
  Receive Date: 20140321
  Receipt Date: 20140321
  Transmission Date: 20141002
  Serious: Yes (Death)
  Sender: FDA-Public Use
  Company Number: AUR-APL-2014-03187

PATIENT
  Age: 59 Year
  Sex: Male
  Weight: 86 kg

DRUGS (3)
  1. METOPROLOL [Suspect]
     Indication: HYPERTENSION
     Dosage: (50 MG), UNKNOWN
  2. EFEXOR XR [Suspect]
     Indication: DEPRESSION
  3. FLECALINIDE ACETATE (FLECAINIE ACETATE) [Suspect]
     Indication: ATRIAL FIBRILLATION

REACTIONS (1)
  - Myocardial infarction [None]
